FAERS Safety Report 8110780-X (Version None)
Quarter: 2012Q1

REPORT INFORMATION
  Report Type: 
  Country: None (occurrence: None)
  Receive Date: 20120203
  Receipt Date: 20120119
  Transmission Date: 20120608
  Serious: Yes (Hospitalization)
  Sender: FDA-Public Use
  Company Number: CA-JNJFOC-20111205875

PATIENT
  Sex: Male
  Weight: 83 kg

DRUGS (5)
  1. IMURAN [Concomitant]
     Route: 048
  2. PREDNISONE TAB [Concomitant]
     Route: 065
  3. REMICADE [Suspect]
     Route: 042
     Dates: start: 20111121
  4. REMICADE [Suspect]
     Indication: COLITIS ULCERATIVE
     Dosage: 3RD LOADING DOSE
     Route: 042
     Dates: start: 20120119
  5. REMICADE [Suspect]
     Route: 042
     Dates: start: 20111107

REACTIONS (1)
  - HERPES VIRUS INFECTION [None]
